FAERS Safety Report 18777482 (Version 1)
Quarter: 2021Q1

REPORT INFORMATION
  Report Type: Spontaneous
  Country: US (occurrence: US)
  Receive Date: 20210123
  Receipt Date: 20210123
  Transmission Date: 20210419
  Serious: No
  Sender: FDA-Public Use
  Company Number: US-TAKEDA-2021TUS003243

PATIENT
  Sex: Female
  Weight: 106.58 kg

DRUGS (17)
  1. KLOR?CON [Concomitant]
     Active Substance: POTASSIUM CHLORIDE
  2. ELIQUIS [Concomitant]
     Active Substance: APIXABAN
  3. ACETAMINOPHEN. [Concomitant]
     Active Substance: ACETAMINOPHEN
  4. DIPHENHYDRAMINE. [Concomitant]
     Active Substance: DIPHENHYDRAMINE
  5. METHOTREXATE. [Concomitant]
     Active Substance: METHOTREXATE
  6. VITAMIN D3 [Concomitant]
     Active Substance: CHOLECALCIFEROL
  7. LEXAPRO [Concomitant]
     Active Substance: ESCITALOPRAM OXALATE
  8. FUROSEMIDE. [Concomitant]
     Active Substance: FUROSEMIDE
  9. CUVITRU [Suspect]
     Active Substance: HUMAN IMMUNOGLOBULIN G
     Indication: IMMUNODEFICIENCY COMMON VARIABLE
     Dosage: 22 GRAM, 1/WEEK
     Route: 058
     Dates: start: 20171108
  10. XIIDRA [Concomitant]
     Active Substance: LIFITEGRAST
  11. EPINEPHRINE. [Concomitant]
     Active Substance: EPINEPHRINE
  12. LMX4 [Concomitant]
     Active Substance: LIDOCAINE
  13. HYDROCORTISONE. [Concomitant]
     Active Substance: HYDROCORTISONE
  14. ZOLPIDEM [Concomitant]
     Active Substance: ZOLPIDEM TARTRATE
  15. METAXALL [Concomitant]
     Active Substance: METAXALONE
  16. FOLIC ACID. [Concomitant]
     Active Substance: FOLIC ACID
  17. AMOXICILLIN. [Concomitant]
     Active Substance: AMOXICILLIN

REACTIONS (2)
  - Swelling [Unknown]
  - Weight increased [Unknown]
